FAERS Safety Report 12211431 (Version 2)
Quarter: 2016Q2

REPORT INFORMATION
  Report Type: Spontaneous
  Country: US (occurrence: US)
  Receive Date: 20160325
  Receipt Date: 20160628
  Transmission Date: 20160815
  Serious: No
  Sender: FDA-Public Use
  Company Number: US-KERYX BIOPHARMACEUTICALS, INC.-2016US001826

PATIENT
  Age: 34 Year
  Sex: Female
  Weight: 134.5 kg

DRUGS (5)
  1. EPOGEN [Concomitant]
     Active Substance: ERYTHROPOIETIN
     Dosage: 4000 UNIT, UNK
     Route: 065
     Dates: start: 20160130, end: 20160213
  2. EPOGEN [Concomitant]
     Active Substance: ERYTHROPOIETIN
     Dosage: 4500 UNIT, UNK
     Route: 065
     Dates: start: 20151114, end: 20160116
  3. EPOGEN [Concomitant]
     Active Substance: ERYTHROPOIETIN
     Dosage: 3500 UNIT, UNK
     Route: 065
     Dates: start: 20160116, end: 20160130
  4. AURYXIA [Suspect]
     Active Substance: TETRAFERRIC TRICITRATE DECAHYDRATE
     Indication: BLOOD PHOSPHORUS INCREASED
     Dosage: 2 TAB, TID WITH MEALS
     Route: 048
     Dates: start: 20150827, end: 20160225
  5. EPOGEN [Concomitant]
     Active Substance: ERYTHROPOIETIN
     Indication: PRODUCT USED FOR UNKNOWN INDICATION
     Dosage: 5000 UNIT, UNK
     Route: 065
     Dates: start: 20151025, end: 20151107

REACTIONS (1)
  - Transferrin saturation increased [Recovering/Resolving]

NARRATIVE: CASE EVENT DATE: 20160211
